FAERS Safety Report 5022565-1 (Version None)
Quarter: 2006Q2

REPORT INFORMATION
  Report Type: 
  Country: None (occurrence: None)
  Receive Date: 20060605
  Receipt Date: 20060522
  Transmission Date: 20061013
  Serious: Yes (Hospitalization)
  Sender: FDA-Public Use
  Company Number: PIR-0605032

PATIENT
  Age: 5 Year
  Sex: Female

DRUGS (1)
  1. CEFTRIAXONE FOR INJECTION [Suspect]
     Indication: PNEUMONIA

REACTIONS (12)
  - BLOOD URIC ACID INCREASED [None]
  - CREATINE PHOSPHOKINASE DECREASED [None]
  - HAEMOLYSIS [None]
  - HAEMOLYTIC ANAEMIA [None]
  - HYPERKALAEMIA [None]
  - HYPERSENSITIVITY [None]
  - LEUKOCYTURIA [None]
  - NEPHRITIS INTERSTITIAL [None]
  - PERITONEAL DIALYSIS [None]
  - RENAL FAILURE ACUTE [None]
  - RETICULOCYTE COUNT INCREASED [None]
  - WHITE BLOOD CELL COUNT INCREASED [None]
